FAERS Safety Report 8537177-2 (Version None)
Quarter: 2012Q3

REPORT INFORMATION
  Report Type: 
  Country: None (occurrence: None)
  Receive Date: 20120725
  Receipt Date: 20120704
  Transmission Date: 20120928
  Serious: Yes (Hospitalization)
  Sender: FDA-Public Use
  Company Number: JP-ASTRAZENECA-2012SE39833

PATIENT
  Age: 11586 Day
  Sex: Male
  Weight: 74 kg

DRUGS (4)
  1. OLMESARTAN MEDOXOMIL [Concomitant]
     Indication: HYPERTENSION
     Route: 048
     Dates: start: 20120528, end: 20120607
  2. CRESTOR [Suspect]
     Indication: HYPERLIPIDAEMIA
     Route: 048
     Dates: start: 20120528, end: 20120604
  3. HEPARINOID [Suspect]
     Indication: TRANSVERSE SINUS THROMBOSIS
     Dosage: 15000-20000 DAILY
     Route: 042
     Dates: start: 20120524, end: 20120604
  4. WARFARIN SODIUM [Concomitant]
     Indication: TRANSVERSE SINUS THROMBOSIS
     Dosage: 2-5 MG ONCE DAILY
     Route: 048
     Dates: start: 20120528, end: 20120612

REACTIONS (2)
  - MYOCARDIAL INFARCTION [None]
  - HEPATIC FUNCTION ABNORMAL [None]
